FAERS Safety Report 6156812-X (Version None)
Quarter: 2009Q2

REPORT INFORMATION
  Report Type: 
  Country: None (occurrence: None)
  Receive Date: 20090413
  Receipt Date: 20081117
  Transmission Date: 20091009
  Serious: No
  Sender: FDA-Public Use
  Company Number: 2008BM000221

PATIENT
  Age: 4 Year
  Sex: Male
  Weight: 24.9478 kg

DRUGS (1)
  1. KUVAN [Suspect]
     Indication: PHENYLKETONURIA
     Dosage: 500 MG;QD;PO
     Route: 048
     Dates: start: 20080809, end: 20090116

REACTIONS (1)
  - MOOD SWINGS [None]
